FAERS Safety Report 7926548-0 (Version None)
Quarter: 2011Q4

REPORT INFORMATION
  Report Type: 
  Country: None (occurrence: None)
  Receive Date: 20111118
  Receipt Date: 20111115
  Transmission Date: 20120403
  Serious: No
  Sender: FDA-Public Use
  Company Number: US-BIOGENIDEC-2011BI043720

PATIENT
  Age: 42 Year
  Sex: Female

DRUGS (3)
  1. CLONAZEPAM [Concomitant]
     Indication: ANXIETY
     Route: 048
  2. ZOLOFT [Concomitant]
     Indication: DEPRESSION
     Route: 048
     Dates: start: 20010101
  3. TYSABRI [Suspect]
     Indication: MULTIPLE SCLEROSIS
     Route: 042
     Dates: start: 20070924

REACTIONS (7)
  - DYSPNOEA [None]
  - VACCINATION COMPLICATION [None]
  - PNEUMONIA [None]
  - DEPRESSION [None]
  - BRONCHITIS [None]
  - WHEEZING [None]
  - COUGH [None]
